FAERS Safety Report 8318089-6 (Version None)
Quarter: 2012Q2

REPORT INFORMATION
  Report Type: 
  Country: None (occurrence: None)
  Receive Date: 20120427
  Receipt Date: 20120426
  Transmission Date: 20120825
  Serious: No
  Sender: FDA-Public Use
  Company Number: GB-ROCHE-1060595

PATIENT
  Sex: Male

DRUGS (1)
  1. XENICAL [Suspect]
     Indication: WEIGHT DECREASED
     Dosage: 3 PER DAY
     Route: 048
     Dates: start: 20120411, end: 20120412

REACTIONS (3)
  - CHEST DISCOMFORT [None]
  - VISION BLURRED [None]
  - PAIN [None]
